FAERS Safety Report 9689610 (Version 1)
Quarter: 2013Q4

REPORT INFORMATION
  Report Type: Spontaneous
  Country: US (occurrence: US)
  Receive Date: 20131115
  Receipt Date: 20131115
  Transmission Date: 20140711
  Serious: Yes (Hospitalization)
  Sender: FDA-Public Use
  Company Number: US-BIOGENIDEC-2013BI110138

PATIENT
  Sex: Female

DRUGS (1)
  1. AVONEX [Suspect]
     Indication: MULTIPLE SCLEROSIS
     Route: 030

REACTIONS (4)
  - Intracranial aneurysm [Not Recovered/Not Resolved]
  - Transient ischaemic attack [Recovered/Resolved]
  - Chills [Recovered/Resolved]
  - Headache [Recovered/Resolved]
